FAERS Safety Report 19885586 (Version 1)
Quarter: 2021Q3

REPORT INFORMATION
  Report Type: Spontaneous
  Country: CA (occurrence: CA)
  Receive Date: 20210927
  Receipt Date: 20210927
  Transmission Date: 20211014
  Serious: Yes (Other)
  Sender: FDA-Public Use
  Company Number: CA-TEVA-2021-CA-1957332

PATIENT
  Age: 64 Year
  Sex: Female

DRUGS (6)
  1. ATIVAN [Concomitant]
     Active Substance: LORAZEPAM
  2. EURO D [Concomitant]
     Active Substance: CHOLECALCIFEROL
  3. METOPROLOL. [Suspect]
     Active Substance: METOPROLOL
     Route: 065
  4. JAMP?COLCHICINE [Concomitant]
  5. SYNTHROID [Concomitant]
     Active Substance: LEVOTHYROXINE SODIUM
  6. PANTOPRAZOLE [Concomitant]
     Active Substance: PANTOPRAZOLE

REACTIONS (2)
  - Blood pressure increased [Unknown]
  - Tremor [Unknown]
